FAERS Safety Report 18122009 (Version 1)
Quarter: 2020Q3

REPORT INFORMATION
  Report Type: Spontaneous
  Country: SE (occurrence: SE)
  Receive Date: 20200807
  Receipt Date: 20200807
  Transmission Date: 20201103
  Serious: Yes (Other)
  Sender: FDA-Public Use
  Company Number: SE-AUROBINDO-AUR-APL-2020-038064

PATIENT
  Age: 55 Year
  Sex: Male

DRUGS (1)
  1. PIPERACILLIN AND TAZOBACTAM [Suspect]
     Active Substance: PIPERACILLIN SODIUM\TAZOBACTAM SODIUM
     Indication: INFECTION
     Dosage: UNK (STYRKA 4G)
     Route: 042
     Dates: start: 20200613, end: 20200613

REACTIONS (2)
  - Hydronephrosis [Recovered/Resolved]
  - Hydroureter [Recovered/Resolved]

NARRATIVE: CASE EVENT DATE: 202006
